FAERS Safety Report 7730647-6 (Version None)
Quarter: 2011Q3

REPORT INFORMATION
  Report Type: 
  Country: None (occurrence: None)
  Receive Date: 20110906
  Receipt Date: 20110829
  Transmission Date: 20111222
  Serious: Yes (Other)
  Sender: FDA-Public Use
  Company Number: US-CEPHALON-2011004539

PATIENT
  Sex: Female

DRUGS (2)
  1. PROVIGIL [Suspect]
     Route: 048
     Dates: end: 20100101
  2. ST JOHN'S WORT [Suspect]

REACTIONS (3)
  - SEROTONIN SYNDROME [None]
  - DRUG INTERACTION [None]
  - INSOMNIA [None]
